FAERS Safety Report 15095056 (Version 1)
Quarter: 2018Q3

REPORT INFORMATION
  Report Type: Spontaneous
  Country: US (occurrence: US)
  Receive Date: 20180702
  Receipt Date: 20180702
  Transmission Date: 20181010
  Serious: No
  Sender: FDA-Public Use
  Company Number: US-009507513-1806USA011094

PATIENT
  Age: 19 Year
  Sex: Female
  Weight: 85.71 kg

DRUGS (1)
  1. NEXPLANON [Suspect]
     Active Substance: ETONOGESTREL
     Indication: CONTRACEPTION
     Dosage: 3 YEAR IMPLANT (RIGHT ARM IMPLANT)
     Route: 059
     Dates: start: 20150808

REACTIONS (5)
  - Implant site pain [Unknown]
  - Emotional disorder [Unknown]
  - Pain [Unknown]
  - Vaginal discharge [Unknown]
  - Amenorrhoea [Unknown]

NARRATIVE: CASE EVENT DATE: 201702
